FAERS Safety Report 12668092 (Version 1)
Quarter: 2016Q3

REPORT INFORMATION
  Report Type: Spontaneous
  Country: IT (occurrence: IT)
  Receive Date: 20160819
  Receipt Date: 20160819
  Transmission Date: 20161109
  Serious: Yes (Other)
  Sender: FDA-Public Use
  Company Number: IT-PRESTIUM-2016RN000363

PATIENT

DRUGS (1)
  1. ACYCLOVIR. [Suspect]
     Active Substance: ACYCLOVIR
     Indication: THERAPEUTIC PROCEDURE
     Dosage: 4 G, SINGLE DOSE
     Route: 048

REACTIONS (4)
  - Abdominal pain upper [Recovering/Resolving]
  - Thirst [Recovering/Resolving]
  - Nausea [Recovering/Resolving]
  - Accidental exposure to product [Unknown]

NARRATIVE: CASE EVENT DATE: 20160321
